FAERS Safety Report 6355485-0 (Version None)
Quarter: 2009Q3

REPORT INFORMATION
  Report Type: 
  Country: None (occurrence: None)
  Receive Date: 20090914
  Receipt Date: 20090909
  Transmission Date: 20100115
  Serious: Yes (Hospitalization)
  Sender: FDA-Public Use
  Company Number: US-GILEAD-2009-0024170

PATIENT
  Sex: Female
  Weight: 65.83 kg

DRUGS (22)
  1. LETAIRIS [Suspect]
     Indication: PULMONARY ARTERIAL HYPERTENSION
     Route: 048
     Dates: start: 20080318
  2. LANOXIN [Concomitant]
  3. LISINOPRIL [Concomitant]
  4. PLAVIX [Concomitant]
  5. COUMADIN [Concomitant]
  6. NITROGLYCERIN [Concomitant]
  7. DILTIAZEM [Concomitant]
  8. MICARDIS [Concomitant]
  9. FUROSEMIDE [Concomitant]
  10. METOCLOPRAMIDE [Concomitant]
  11. DARVOCET-N 100 [Concomitant]
  12. FENTANYL [Concomitant]
  13. COLCHICINE [Concomitant]
  14. MAGNESIUM [Concomitant]
  15. MELOXICAM [Concomitant]
  16. OXYGEN [Concomitant]
  17. FOLIC ACID [Concomitant]
  18. NEXIUM [Concomitant]
  19. MECLIZINE [Concomitant]
  20. POTASSIUM CHLORIDE [Concomitant]
  21. NIASPAN [Concomitant]
  22. HYDROCODONE BITARTRATE AND ACETAMINOPHEN [Concomitant]

REACTIONS (2)
  - CARDIAC FAILURE CONGESTIVE [None]
  - OEDEMA PERIPHERAL [None]
